FAERS Safety Report 21594929 (Version 1)
Quarter: 2022Q4

REPORT INFORMATION
  Report Type: Spontaneous
  Country: US (occurrence: US)
  Receive Date: 20221115
  Receipt Date: 20221115
  Transmission Date: 20230113
  Serious: Yes (Hospitalization, Other)
  Sender: FDA-Public Use
  Company Number: US-PFIZER INC-202201295909

PATIENT

DRUGS (1)
  1. XELJANZ XR [Suspect]
     Active Substance: TOFACITINIB CITRATE
     Dosage: 11 MG, DAILY
     Route: 048
     Dates: start: 2021

REACTIONS (9)
  - Knee arthroplasty [Not Recovered/Not Resolved]
  - Nerve block [Unknown]
  - Product dose omission issue [Unknown]
  - COVID-19 [Unknown]
  - Cough [Unknown]
  - Cyst [Recovered/Resolved]
  - Spinal disorder [Unknown]
  - Arthritis [Unknown]
  - Epistaxis [Recovered/Resolved]

NARRATIVE: CASE EVENT DATE: 20220101
